FAERS Safety Report 24954822 (Version 2)
Quarter: 2025Q2

REPORT INFORMATION
  Report Type: Report from Study
  Country: JP (occurrence: JP)
  Receive Date: 20250211
  Receipt Date: 20250605
  Transmission Date: 20250716
  Serious: No
  Sender: ALEXION PHARMACEUTICALS
  Company Number: JP-ASTRAZENECA-230054912_013120_P_1

PATIENT
  Age: 67 Year
  Weight: 70 kg

DRUGS (30)
  1. DURVALUMAB [Suspect]
     Active Substance: DURVALUMAB
     Indication: Hepatocellular carcinoma
  2. IMJUDO [Suspect]
     Active Substance: TREMELIMUMAB\TREMELIMUMAB-ACTL
     Indication: Hepatocellular carcinoma
  3. OLMESARTAN MEDOXOMIL [Concomitant]
     Active Substance: OLMESARTAN MEDOXOMIL
     Route: 065
  4. OLMESARTAN MEDOXOMIL [Concomitant]
     Active Substance: OLMESARTAN MEDOXOMIL
     Route: 065
  5. OLMESARTAN MEDOXOMIL [Concomitant]
     Active Substance: OLMESARTAN MEDOXOMIL
     Route: 065
  6. BISOPROLOL FUMARATE [Concomitant]
     Active Substance: BISOPROLOL FUMARATE
  7. BISOPROLOL FUMARATE [Concomitant]
     Active Substance: BISOPROLOL FUMARATE
  8. BISOPROLOL FUMARATE [Concomitant]
     Active Substance: BISOPROLOL FUMARATE
  9. CILNIDIPINE [Concomitant]
     Active Substance: CILNIDIPINE
  10. CILNIDIPINE [Concomitant]
     Active Substance: CILNIDIPINE
  11. CILNIDIPINE [Concomitant]
     Active Substance: CILNIDIPINE
  12. TRICHLORMETHIAZIDE [Concomitant]
     Active Substance: TRICHLORMETHIAZIDE
  13. TRICHLORMETHIAZIDE [Concomitant]
     Active Substance: TRICHLORMETHIAZIDE
  14. TRICHLORMETHIAZIDE [Concomitant]
     Active Substance: TRICHLORMETHIAZIDE
  15. FEBUXOSTAT [Concomitant]
     Active Substance: FEBUXOSTAT
  16. FEBUXOSTAT [Concomitant]
     Active Substance: FEBUXOSTAT
  17. FEBUXOSTAT [Concomitant]
     Active Substance: FEBUXOSTAT
  18. GLIMEPIRIDE [Concomitant]
     Active Substance: GLIMEPIRIDE
  19. GLIMEPIRIDE [Concomitant]
     Active Substance: GLIMEPIRIDE
  20. GLIMEPIRIDE [Concomitant]
     Active Substance: GLIMEPIRIDE
  21. TENELIGLIPTIN HYDROBROMIDE HYDRATE [Concomitant]
     Active Substance: TENELIGLIPTIN HYDROBROMIDE HYDRATE
  22. TENELIGLIPTIN [Concomitant]
     Active Substance: TENELIGLIPTIN
  23. TENELIGLIPTIN [Concomitant]
     Active Substance: TENELIGLIPTIN
  24. LEVOTHYROXINE [Concomitant]
     Active Substance: LEVOTHYROXINE
  25. ROSUVASTATIN [Concomitant]
     Active Substance: ROSUVASTATIN
  26. ROSUVASTATIN [Concomitant]
     Active Substance: ROSUVASTATIN
  27. TRESIBA [Concomitant]
     Active Substance: INSULIN DEGLUDEC
     Route: 065
  28. TRESIBA [Concomitant]
     Active Substance: INSULIN DEGLUDEC
     Route: 065
  29. NOVORAPID [Concomitant]
     Active Substance: INSULIN ASPART
     Route: 065
  30. NOVORAPID [Concomitant]
     Active Substance: INSULIN ASPART
     Route: 065

REACTIONS (1)
  - No adverse event [Unknown]
